FAERS Safety Report 18171351 (Version 1)
Quarter: 2020Q3

REPORT INFORMATION
  Report Type: Spontaneous
  Country: NL (occurrence: NL)
  Receive Date: 20200819
  Receipt Date: 20200819
  Transmission Date: 20201103
  Serious: Yes (Death)
  Sender: FDA-Public Use
  Company Number: NL-CELGENEUS-NLD-20191006202

PATIENT
  Sex: Male

DRUGS (1)
  1. AG?221 [Suspect]
     Active Substance: ENASIDENIB
     Indication: PRODUCT USED FOR UNKNOWN INDICATION
     Dosage: 2 CYCLES
     Route: 048
     Dates: start: 20190828

REACTIONS (2)
  - Death [Fatal]
  - Skin reaction [Unknown]

NARRATIVE: CASE EVENT DATE: 2019
